FAERS Safety Report 22611863 (Version 3)
Quarter: 2025Q3

REPORT INFORMATION
  Report Type: Report from Study
  Country: MY (occurrence: MY)
  Receive Date: 20230616
  Receipt Date: 20250718
  Transmission Date: 20251021
  Serious: Yes (Hospitalization)
  Sender: INCYTE
  Company Number: MY-002147023-NVSC2023MY131230

PATIENT
  Age: 56 Year

DRUGS (1)
  1. RUXOLITINIB [Suspect]
     Active Substance: RUXOLITINIB
     Indication: Myelofibrosis
     Dosage: 20 MG, BID

REACTIONS (2)
  - Haemoglobin decreased [Unknown]
  - Sepsis [Unknown]
